FAERS Safety Report 7825908-6 (Version None)
Quarter: 2011Q4

REPORT INFORMATION
  Report Type: 
  Country: None (occurrence: None)
  Receive Date: 20111019
  Receipt Date: 20111006
  Transmission Date: 20120403
  Serious: Yes (Hospitalization, Disabling, Other)
  Sender: FDA-Public Use
  Company Number: US-ROCHE-545016

PATIENT
  Sex: Female
  Weight: 68 kg

DRUGS (16)
  1. AMNESTEEM [Suspect]
     Indication: ACNE
     Route: 065
     Dates: start: 20030201, end: 20030301
  2. RETIN-A [Concomitant]
     Indication: ACNE
  3. SULFACETAMIDE SODIUM [Concomitant]
  4. TRIAZ [Concomitant]
     Indication: ACNE
  5. DIFFERIN [Concomitant]
     Indication: ACNE
  6. NOVACET [Concomitant]
     Indication: ACNE
  7. ACCUTANE [Suspect]
     Indication: ACNE
     Dosage: THE PATIENT TOOK ACCUTANE 20 MG IN MORNING AND 40 MG IN EVENING.
     Route: 065
     Dates: start: 20030103, end: 20030523
  8. DESOWEN [Concomitant]
  9. BENZAMYCIN [Concomitant]
     Indication: ACNE
  10. CLEOCIN T [Concomitant]
     Indication: ACNE
  11. DOXYCYCLINE [Concomitant]
     Indication: ACNE
  12. MINOCIN [Concomitant]
     Indication: ACNE
  13. AMPICILLIN SODIUM [Concomitant]
     Indication: ACNE
  14. BIRTH CONTROL PILLS NOS [Concomitant]
  15. TAZORAC [Concomitant]
     Indication: ACNE
  16. MONODOX [Concomitant]
     Indication: ACNE

REACTIONS (18)
  - COLITIS [None]
  - BACK PAIN [None]
  - HAEMORRHOIDS [None]
  - INFLAMMATORY BOWEL DISEASE [None]
  - XEROSIS [None]
  - ANAL FISSURE [None]
  - INTERVERTEBRAL DISC DEGENERATION [None]
  - PROCTITIS [None]
  - GOITRE [None]
  - ECZEMA [None]
  - LIPIDS INCREASED [None]
  - PHOTOPSIA [None]
  - VIRAL INFECTION [None]
  - HYPOTHYROIDISM [None]
  - DERMATITIS CONTACT [None]
  - EAR PAIN [None]
  - IRRITABLE BOWEL SYNDROME [None]
  - UPPER RESPIRATORY TRACT INFECTION [None]
